FAERS Safety Report 13156060 (Version 1)
Quarter: 2017Q1

REPORT INFORMATION
  Report Type: Spontaneous
  Country: US (occurrence: US)
  Receive Date: 20170126
  Receipt Date: 20170126
  Transmission Date: 20170428
  Serious: No
  Sender: FDA-Public Use
  Company Number: US-ROCHE-791487

PATIENT
  Age: 78 Year
  Sex: Female

DRUGS (1)
  1. VALIUM [Suspect]
     Active Substance: DIAZEPAM
     Indication: VESTIBULAR DISORDER
     Dosage: DOSE: HALF A 2 MG TABLET, QD
     Route: 048

REACTIONS (3)
  - Product physical issue [Unknown]
  - Drug effect increased [Unknown]
  - Somnolence [Unknown]

NARRATIVE: CASE EVENT DATE: 201107
